FAERS Safety Report 5188492-4 (Version None)
Quarter: 2006Q4

REPORT INFORMATION
  Report Type: 
  Country: None (occurrence: None)
  Receive Date: 20061214
  Receipt Date: 20061201
  Transmission Date: 20070319
  Serious: Yes (Death, Hospitalization, Other)
  Sender: FDA-Public Use
  Company Number: 2006148858

PATIENT
  Age: 60 Year
  Sex: Male
  Weight: 61.2356 kg

DRUGS (1)
  1. SUTENT [Suspect]
     Indication: RENAL CELL CARCINOMA STAGE UNSPECIFIED
     Dosage: 50 MG (50 MG, 1 IN 1 D)
     Dates: start: 20061103, end: 20061122

REACTIONS (7)
  - ANION GAP INCREASED [None]
  - BLOOD ALKALINE PHOSPHATASE INCREASED [None]
  - BLOOD BICARBONATE INCREASED [None]
  - BLOOD SODIUM DECREASED [None]
  - CONVULSION [None]
  - LACTIC ACIDOSIS [None]
  - LEFT VENTRICULAR FAILURE [None]
